FAERS Safety Report 20709961 (Version 1)
Quarter: 2022Q2

REPORT INFORMATION
  Report Type: Spontaneous
  Country: CA (occurrence: None)
  Receive Date: 20220414
  Receipt Date: 20220414
  Transmission Date: 20220721
  Serious: Yes (Other)
  Sender: FDA-Public Use
  Company Number: CA-ROCHE-3073054

PATIENT
  Age: 43 Year
  Sex: Male
  Weight: 104 kg

DRUGS (1)
  1. RITUXIMAB [Suspect]
     Active Substance: RITUXIMAB
     Indication: Autoimmune haemolytic anaemia
     Route: 042

REACTIONS (9)
  - Blood pressure fluctuation [Recovered/Resolved]
  - Body temperature decreased [Recovered/Resolved]
  - Deep vein thrombosis [Recovered/Resolved]
  - Heart rate irregular [Recovered/Resolved]
  - Inappropriate schedule of product administration [Unknown]
  - Off label use [Unknown]
  - Pain in extremity [Recovered/Resolved]
  - Respiratory rate increased [Recovered/Resolved]
  - Vital functions abnormal [Recovered/Resolved]
